FAERS Safety Report 14304594 (Version 1)
Quarter: 2017Q4

REPORT INFORMATION
  Report Type: Spontaneous
  Country: GB (occurrence: GB)
  Receive Date: 20171219
  Receipt Date: 20171219
  Transmission Date: 20180321
  Serious: Yes (Death, Hospitalization, Other)
  Sender: FDA-Public Use
  Company Number: GB-OTSUKA-DJ20113336

PATIENT
  Sex: Male

DRUGS (1)
  1. ABILIFY [Suspect]
     Active Substance: ARIPIPRAZOLE
     Indication: DELUSION
     Dosage: 5 MG, UNK
     Route: 065
     Dates: start: 20091105

REACTIONS (3)
  - Cellulitis [Fatal]
  - Electrocardiogram QT prolonged [Unknown]
  - Septic shock [Fatal]
